FAERS Safety Report 7657572-3 (Version None)
Quarter: 2011Q3

REPORT INFORMATION
  Report Type: 
  Country: None (occurrence: None)
  Receive Date: 20110804
  Receipt Date: 20110727
  Transmission Date: 20111222
  Serious: Yes (Death, Life-Threatening, Hospitalization)
  Sender: FDA-Public Use
  Company Number: JP-AMGEN-JPNSP2011027263

PATIENT
  Age: 81 Year
  Sex: Female
  Weight: 52 kg

DRUGS (16)
  1. ENBREL [Suspect]
     Dosage: 25 MG, 2X/WEEK
     Route: 058
     Dates: start: 20080612, end: 20110512
  2. LIVACT                             /00847901/ [Concomitant]
     Indication: HEPATIC CIRRHOSIS
     Dosage: 4.15 G, 3X/DAY
     Route: 048
  3. ALENDRONATE SODIUM [Concomitant]
     Indication: OSTEOPOROSIS
     Dosage: 35 MG, 1X/DAY
     Route: 048
  4. ONE-ALPHA [Concomitant]
     Indication: OSTEOPOROSIS
     Dosage: 0.5 UG, 1X/DAY
     Route: 048
  5. CYTOTEC [Concomitant]
     Indication: GASTRITIS
     Dosage: 200 UG, 1X/DAY
     Route: 048
  6. MONILAC [Concomitant]
     Indication: HEPATIC CIRRHOSIS
     Dosage: 10 ML, 3X/DAY
     Route: 048
  7. METHOTREXATE [Concomitant]
     Indication: RHEUMATOID ARTHRITIS
     Dosage: 2 MG, 2X/DAY
     Route: 048
     Dates: start: 20000101
  8. FOLIC ACID [Concomitant]
     Indication: PROPHYLAXIS
     Dosage: 5 MG, 1X/DAY
     Route: 048
  9. ALDACTONE [Concomitant]
     Indication: HEPATIC CIRRHOSIS
     Dosage: 50 MG, 1X/DAY
     Route: 048
  10. LASIX [Concomitant]
     Indication: HEPATIC CIRRHOSIS
     Dosage: 40 MG, 1X/DAY
     Route: 048
  11. URSO                               /00465701/ [Concomitant]
     Indication: HEPATIC CIRRHOSIS
     Dosage: 200 MG, 3X/DAY
     Route: 048
  12. GLAKAY [Concomitant]
     Indication: OSTEOPOROSIS
     Dosage: 15 MG, 3X/DAY
     Route: 048
  13. PREDNISOLONE [Concomitant]
     Indication: RHEUMATOID ARTHRITIS
     Dosage: 2 MG, 1X/DAY
     Route: 048
  14. ENBREL [Suspect]
     Indication: RHEUMATOID ARTHRITIS
     Dosage: 25 MG, WEEKLY
     Route: 058
     Dates: start: 20051001, end: 20080605
  15. NIVADIL [Concomitant]
     Indication: HYPERTENSION
     Dosage: 2 MG, 1X/DAY
     Route: 048
  16. LANSOPRAZOLE [Concomitant]
     Indication: GASTROOESOPHAGEAL REFLUX DISEASE
     Dosage: 15 MG, 1X/DAY
     Route: 048

REACTIONS (1)
  - HEPATIC NEOPLASM MALIGNANT [None]
